FAERS Safety Report 5476868-7 (Version None)
Quarter: 2007Q4

REPORT INFORMATION
  Report Type: 
  Country: None (occurrence: None)
  Receive Date: 20071002
  Receipt Date: 20071002
  Transmission Date: 20080405
  Serious: Yes (Other)
  Sender: FDA-Public Use
  Company Number: None

PATIENT
  Age: 49 Year
  Sex: Male
  Weight: 102.0593 kg

DRUGS (1)
  1. BUPROPION HCL [Suspect]
     Indication: DEPRESSION
     Dosage: 1 PER DAY ORAL
     Route: 048
     Dates: start: 20070101, end: 20070801

REACTIONS (4)
  - BLOOD PRESSURE INCREASED [None]
  - DEPRESSION [None]
  - DISEASE RECURRENCE [None]
  - TINNITUS [None]
